FAERS Safety Report 11337101 (Version 2)
Quarter: 2015Q4

REPORT INFORMATION
  Report Type: Report from Study
  Country: BR (occurrence: BR)
  Receive Date: 20150804
  Receipt Date: 20151124
  Transmission Date: 20160304
  Serious: Yes (Hospitalization, Disabling, Other)
  Sender: FDA-Public Use
  Company Number: PHHY2015BR090348

PATIENT
  Age: 60 Year
  Sex: Female
  Weight: 76 kg

DRUGS (2)
  1. GILENYA [Suspect]
     Active Substance: FINGOLIMOD HYDROCHLORIDE
     Indication: MULTIPLE SCLEROSIS
     Dosage: UNK
     Route: 065
     Dates: start: 201106
  2. GILENYA [Suspect]
     Active Substance: FINGOLIMOD HYDROCHLORIDE
     Dosage: 0.5 MG, QOD
     Route: 048
     Dates: start: 20150223

REACTIONS (15)
  - Multiple sclerosis relapse [Unknown]
  - Hypertension [Recovering/Resolving]
  - Gallbladder pain [Unknown]
  - Dyspnoea [Recovered/Resolved]
  - Intentional underdose [Unknown]
  - Thrombosis [Unknown]
  - Hypokinesia [Recovering/Resolving]
  - Back pain [Unknown]
  - Gait disturbance [Unknown]
  - Cholelithiasis [Recovered/Resolved]
  - Anaemia [Unknown]
  - Limb discomfort [Recovering/Resolving]
  - Cholecystitis infective [Unknown]
  - Haemorrhoids [Recovering/Resolving]
  - Rectal haemorrhage [Recovered/Resolved]

NARRATIVE: CASE EVENT DATE: 2014
